FAERS Safety Report 21422501 (Version 10)
Quarter: 2023Q2

REPORT INFORMATION
  Report Type: Spontaneous
  Country: US (occurrence: US)
  Receive Date: 20221007
  Receipt Date: 20230621
  Transmission Date: 20230722
  Serious: Yes (Other)
  Sender: FDA-Public Use
  Company Number: US-PFIZER INC-PV202200078186

PATIENT
  Age: 42 Year
  Sex: Female

DRUGS (3)
  1. IBRANCE [Suspect]
     Active Substance: PALBOCICLIB
     Dosage: UNK
     Dates: start: 20220929
  2. IBRANCE [Suspect]
     Active Substance: PALBOCICLIB
     Dosage: UNK
     Dates: start: 20220930
  3. IBRANCE [Suspect]
     Active Substance: PALBOCICLIB
     Dosage: 100 MG

REACTIONS (21)
  - Neutrophil count decreased [Unknown]
  - Neutropenia [Recovering/Resolving]
  - Dizziness [Recovered/Resolved]
  - Fatigue [Unknown]
  - Decreased appetite [Unknown]
  - Insomnia [Not Recovered/Not Resolved]
  - Bone pain [Recovered/Resolved]
  - White blood cell count decreased [Unknown]
  - Pyrexia [Unknown]
  - Arthralgia [Unknown]
  - Chills [Unknown]
  - Inflammation [Unknown]
  - Lymphoedema [Unknown]
  - Full blood count decreased [Unknown]
  - Pain [Unknown]
  - Body temperature decreased [Unknown]
  - Night sweats [Unknown]
  - Mood altered [Unknown]
  - Constipation [Unknown]
  - Depressed mood [Unknown]
  - Tumour marker increased [Unknown]

NARRATIVE: CASE EVENT DATE: 20220101
